FAERS Safety Report 6419472-6 (Version None)
Quarter: 2009Q4

REPORT INFORMATION
  Report Type: 
  Country: None (occurrence: None)
  Receive Date: 20091027
  Receipt Date: 20091013
  Transmission Date: 20100525
  Serious: Yes (Hospitalization)
  Sender: FDA-Public Use
  Company Number: FABR-1000750

PATIENT
  Age: 35 Year
  Sex: Male
  Weight: 55 kg

DRUGS (5)
  1. FABRAZYME [Suspect]
     Indication: FABRY'S DISEASE
     Dosage: 55 MG, Q2W, INTRAVENOUS; 55 MG, Q2W; 55 MG, Q2W, INTRAVENOUS
     Route: 042
     Dates: start: 20090406, end: 20090406
  2. FABRAZYME [Suspect]
     Indication: FABRY'S DISEASE
     Dosage: 55 MG, Q2W, INTRAVENOUS; 55 MG, Q2W; 55 MG, Q2W, INTRAVENOUS
     Route: 042
     Dates: start: 20081114
  3. FABRAZYME [Suspect]
  4. FABRAZYME [Suspect]
  5. FABRAZYME [Suspect]

REACTIONS (8)
  - ABDOMINAL PAIN UPPER [None]
  - BLOOD PRESSURE SYSTOLIC INCREASED [None]
  - CHILLS [None]
  - FEELING COLD [None]
  - INFUSION RELATED REACTION [None]
  - MUSCLE SPASMS [None]
  - NAUSEA [None]
  - VOMITING [None]
